FAERS Safety Report 8021059-9 (Version None)
Quarter: 2012Q1

REPORT INFORMATION
  Report Type: 
  Country: None (occurrence: None)
  Receive Date: 20120104
  Receipt Date: 20111222
  Transmission Date: 20120608
  Serious: Yes (Other)
  Sender: FDA-Public Use
  Company Number: CA-JNJFOC-20111212817

PATIENT
  Sex: Male
  Weight: 135 kg

DRUGS (4)
  1. IMURAN [Concomitant]
  2. PANTOPRAZOLE SODIUM [Concomitant]
  3. REMICADE [Suspect]
     Indication: COLITIS ULCERATIVE
     Dosage: 7 INFUSIONS
     Route: 042
     Dates: start: 20110501
  4. ZOPICLONE [Concomitant]

REACTIONS (3)
  - APNOEA [None]
  - DYSPNOEA [None]
  - INFUSION RELATED REACTION [None]
